FAERS Safety Report 13343452 (Version 2)
Quarter: 2017Q3

REPORT INFORMATION
  Report Type: Spontaneous
  Country: FR (occurrence: FR)
  Receive Date: 20170316
  Receipt Date: 20170911
  Transmission Date: 20171127
  Serious: No
  Sender: FDA-Public Use
  Company Number: FR-PFIZER INC-2017112900

PATIENT
  Age: 1 Day
  Sex: Male
  Weight: 2 kg

DRUGS (4)
  1. PROSTIGMINE [Suspect]
     Active Substance: NEOSTIGMINE BROMIDE
     Dosage: 1 DF, SINGLE
     Dates: start: 20160806, end: 20160806
  2. PROSTINE VR [Suspect]
     Active Substance: ALPROSTADIL
     Indication: PULMONARY ARTERY ATRESIA
  3. ACETYLSALICYLIC ACID [Concomitant]
     Active Substance: ASPIRIN
     Dosage: 50 MG, UNK
  4. PROSTIGMINE [Suspect]
     Active Substance: NEOSTIGMINE BROMIDE
     Dosage: 1 DF, SINGLE
     Dates: start: 20160807, end: 20160807

REACTIONS (1)
  - Drug administration error [Recovered/Resolved]

NARRATIVE: CASE EVENT DATE: 20160806
